FAERS Safety Report 7264502-5 (Version None)
Quarter: 2011Q1

REPORT INFORMATION
  Report Type: 
  Country: None (occurrence: None)
  Receive Date: 20110131
  Receipt Date: 20110125
  Transmission Date: 20110831
  Serious: No
  Sender: FDA-Public Use
  Company Number: US-PFIZER INC-2011017994

PATIENT
  Sex: Female
  Weight: 59 kg

DRUGS (1)
  1. PREMARIN [Suspect]
     Dosage: 1.25 MG, DAILY
     Route: 048
     Dates: start: 19860615

REACTIONS (4)
  - ARTHRALGIA [None]
  - ASTHENIA [None]
  - FEELING ABNORMAL [None]
  - HOT FLUSH [None]
